FAERS Safety Report 6545951-7 (Version None)
Quarter: 2010Q1

REPORT INFORMATION
  Report Type: 
  Country: None (occurrence: None)
  Receive Date: 20100121
  Receipt Date: 20100113
  Transmission Date: 20100710
  Serious: Yes (Death)
  Sender: FDA-Public Use
  Company Number: US-MERCK-1001USA01528

PATIENT
  Age: 90 Year
  Sex: Female

DRUGS (8)
  1. TIAMATE [Suspect]
     Route: 048
  2. GLYBURIDE [Suspect]
     Route: 065
  3. TENORMIN [Suspect]
     Route: 065
  4. WARFARIN [Suspect]
     Route: 065
  5. FUROSEMIDE [Suspect]
     Route: 065
  6. POTASSIUM CHLORIDE [Suspect]
     Route: 065
  7. METOLAZONE [Suspect]
     Route: 065
  8. HYDRALAZINE [Suspect]
     Route: 065

REACTIONS (1)
  - MEDICATION ERROR [None]
